FAERS Safety Report 20350043 (Version 1)
Quarter: 2022Q1

REPORT INFORMATION
  Report Type: Spontaneous
  Country: US (occurrence: US)
  Receive Date: 20220119
  Receipt Date: 20220119
  Transmission Date: 20220424
  Serious: Yes (Congenital Anomaly)
  Sender: FDA-Public Use
  Company Number: US-NOVARTISPH-NVSC2022US009804

PATIENT

DRUGS (1)
  1. ZOFRAN [Suspect]
     Active Substance: ONDANSETRON HYDROCHLORIDE
     Indication: Foetal exposure during pregnancy
     Dosage: MOTHER DOSE: UNK
     Route: 064

REACTIONS (3)
  - Micrognathia [Unknown]
  - Foetal exposure during pregnancy [Unknown]
  - Injury [Unknown]
